FAERS Safety Report 8921526 (Version 1)
Quarter: 2012Q4

REPORT INFORMATION
  Report Type: 
  Country: US (occurrence: US)
  Receive Date: 20121121
  Receipt Date: 20121121
  Transmission Date: 20130627
  Serious: Yes (Hospitalization, Other)
  Sender: FDA-Public Use
  Company Number: US-TARO-2012P1065167

PATIENT
  Sex: Female
  Weight: 74.39 kg

DRUGS (3)
  1. PHENYTOIN [Suspect]
     Indication: CONVULSION
     Route: 048
     Dates: end: 201210
  2. PHENYTOIN SODIUM EXTENDED CAPSULES USP 100MG [Suspect]
  3. PHENYTOIN SODIUM EXTENDED CAPSULES USP 100MG [Suspect]
     Dates: start: 201210

REACTIONS (15)
  - Balance disorder [Unknown]
  - Anticonvulsant drug level abnormal [Recovered/Resolved]
  - Convulsion [Recovered/Resolved]
  - Grand mal convulsion [Recovered/Resolved]
  - Anticonvulsant drug level below therapeutic [Unknown]
  - Pain [Recovered/Resolved]
  - Sinus arrest [Recovered/Resolved]
  - Rib fracture [Unknown]
  - Fall [Recovered/Resolved]
  - Cough [Unknown]
  - Fluid retention [Unknown]
  - Incoherent [Not Recovered/Not Resolved]
  - Drug ineffective [Recovered/Resolved]
  - Chest pain [Unknown]
  - Product quality issue [Unknown]
